FAERS Safety Report 22874705 (Version 2)
Quarter: 2023Q4

REPORT INFORMATION
  Report Type: Report from Study
  Country: DE (occurrence: DE)
  Receive Date: 20230828
  Receipt Date: 20231010
  Transmission Date: 20240110
  Serious: Yes (Hospitalization)
  Sender: FDA-Public Use
  Company Number: DE-ABBVIE-5304613

PATIENT
  Age: 64 Year
  Sex: Female

DRUGS (13)
  1. RINVOQ [Suspect]
     Active Substance: UPADACITINIB
     Indication: Rheumatoid arthritis
     Route: 048
     Dates: start: 202211, end: 20230301
  2. METHOTREXATE SODIUM [Concomitant]
     Active Substance: METHOTREXATE SODIUM
     Indication: Product used for unknown indication
     Dates: start: 202301
  3. DULOXETINE [Concomitant]
     Active Substance: DULOXETINE
     Indication: Product used for unknown indication
     Dosage: FORM STRENGTH: 30 MG
  4. CHOLECALCIFEROL [Concomitant]
     Active Substance: CHOLECALCIFEROL
     Indication: Product used for unknown indication
     Dosage: FORM STRENGTH: 20000  IU (INTERNATIONAL UNIT)
     Dates: start: 201804
  5. PREGABALIN [Concomitant]
     Active Substance: PREGABALIN
     Indication: Product used for unknown indication
     Dosage: FORM STRENGTH: 50 MG
     Dates: start: 201904
  6. PANTOPRAZOLE [Concomitant]
     Active Substance: PANTOPRAZOLE
     Indication: Product used for unknown indication
     Dosage: FORM STRENGTH: 40 MG
     Dates: start: 201810
  7. ASPIRIN [Concomitant]
     Active Substance: ASPIRIN
     Indication: Product used for unknown indication
     Dosage: FORM STRENGTH: 100 MG
  8. NALOXONE HYDROCHLORIDE\TILIDINE HYDROCHLORIDE [Concomitant]
     Active Substance: NALOXONE HYDROCHLORIDE\TILIDINE HYDROCHLORIDE
     Indication: Product used for unknown indication
     Dosage: 100/8 MG
     Dates: start: 202208
  9. TORSEMIDE [Concomitant]
     Active Substance: TORSEMIDE
     Indication: Product used for unknown indication
     Dosage: FORM STRENGTH: 10 MG
     Dates: start: 201804
  10. PROLIA [Concomitant]
     Active Substance: DENOSUMAB
     Indication: Product used for unknown indication
     Dates: start: 201807
  11. SIMVASTATIN [Concomitant]
     Active Substance: SIMVASTATIN
     Indication: Product used for unknown indication
     Dosage: FORM STRENGTH: 20 MG
  12. METAMIZOLE [Concomitant]
     Active Substance: METAMIZOLE
     Indication: Product used for unknown indication
     Dates: start: 201807
  13. PREDNISOLONE [Concomitant]
     Active Substance: PREDNISOLONE
     Indication: Product used for unknown indication
     Dosage: FORM STRENGTH: 100 MG
     Dates: start: 201603

REACTIONS (3)
  - Urinary tract infection [Recovered/Resolved]
  - Pneumonia [Recovered/Resolved]
  - Lumbar vertebral fracture [Recovered/Resolved]

NARRATIVE: CASE EVENT DATE: 20230206
